FAERS Safety Report 19607751 (Version 1)
Quarter: 2021Q3

REPORT INFORMATION
  Report Type: Spontaneous
  Country: BR (occurrence: BR)
  Receive Date: 20210726
  Receipt Date: 20210726
  Transmission Date: 20211014
  Serious: Yes (Death)
  Sender: FDA-Public Use
  Company Number: BR-ROCHE-2837439

PATIENT
  Age: 56 Year
  Sex: Male

DRUGS (1)
  1. TECENTRIQ [Suspect]
     Active Substance: ATEZOLIZUMAB
     Indication: LUNG NEOPLASM MALIGNANT
     Route: 065
     Dates: start: 202012

REACTIONS (7)
  - Death [Fatal]
  - Muscular weakness [Unknown]
  - Ageusia [Unknown]
  - Mouth ulceration [Unknown]
  - Myositis [Unknown]
  - Rash [Unknown]
  - Weight decreased [Unknown]
